FAERS Safety Report 15716040 (Version 2)
Quarter: 2018Q4

REPORT INFORMATION
  Report Type: Report from Study
  Country: None (occurrence: FR)
  Receive Date: 20181213
  Receipt Date: 20181217
  Transmission Date: 20190205
  Serious: Yes (Disabling, Other)
  Sender: FDA-Public Use
  Company Number: FR-ABBVIE-18S-056-2566948-00

PATIENT
  Age: 78 Year
  Sex: Male

DRUGS (3)
  1. STALEVO [Concomitant]
     Active Substance: CARBIDOPA\ENTACAPONE\LEVODOPA
     Indication: PRODUCT USED FOR UNKNOWN INDICATION
     Route: 065
  2. DUODOPA [Suspect]
     Active Substance: CARBIDOPA\LEVODOPA
     Indication: PARKINSON^S DISEASE
     Route: 050
     Dates: start: 20181116, end: 20181127
  3. DUODOPA [Suspect]
     Active Substance: CARBIDOPA\LEVODOPA
     Dosage: MD TO BE 0.5M/H AND 8 ML
     Route: 050
     Dates: start: 20181127

REACTIONS (12)
  - On and off phenomenon [Unknown]
  - Patient uncooperative [Unknown]
  - Abnormal behaviour [Not Recovered/Not Resolved]
  - Hypophagia [Not Recovered/Not Resolved]
  - Fluid intake reduced [Unknown]
  - Disturbance in attention [Unknown]
  - Mobility decreased [Not Recovered/Not Resolved]
  - Somnolence [Unknown]
  - Aggression [Not Recovered/Not Resolved]
  - Drug ineffective [Unknown]
  - Apathy [Unknown]
  - Malaise [Not Recovered/Not Resolved]

NARRATIVE: CASE EVENT DATE: 201811
